FAERS Safety Report 5662038-6 (Version None)
Quarter: 2008Q1

REPORT INFORMATION
  Report Type: 
  Country: None (occurrence: None)
  Receive Date: 20080312
  Receipt Date: 20080304
  Transmission Date: 20080703
  Serious: Yes (Death)
  Sender: FDA-Public Use
  Company Number: JP-ASTRAZENECA-2008SE01316

PATIENT
  Age: 81 Year
  Sex: Female

DRUGS (8)
  1. BLOPRESS [Suspect]
     Indication: CARDIAC FAILURE CHRONIC
     Route: 048
     Dates: start: 20070111
  2. DIART [Concomitant]
     Route: 048
     Dates: start: 20070110
  3. ALDACTONE [Concomitant]
     Route: 048
     Dates: start: 20070110
  4. HALFDIGOXIN [Concomitant]
     Route: 048
     Dates: start: 20070110
  5. ASPIRIN [Concomitant]
     Route: 048
     Dates: start: 20070110
  6. WARFARIN SODIUM [Concomitant]
     Route: 048
     Dates: start: 20070110
  7. PARAMIDIN [Concomitant]
     Route: 048
     Dates: start: 20070110
  8. VENCOLL [Concomitant]
     Dosage: OPTIMAL DOSE (AS REQUIRED)
     Route: 048

REACTIONS (1)
  - SUDDEN DEATH [None]
